FAERS Safety Report 25472208 (Version 1)
Quarter: 2025Q2

REPORT INFORMATION
  Report Type: Spontaneous
  Country: US (occurrence: US)
  Receive Date: 20250624
  Receipt Date: 20250624
  Transmission Date: 20250717
  Serious: No
  Sender: UNIQUE PHARMACEUTICALS
  Company Number: US-UniquePharma-US-2025UPLSPO00081

PATIENT

DRUGS (2)
  1. GLIPIZIDE [Suspect]
     Active Substance: GLIPIZIDE
     Indication: Diabetes mellitus
     Route: 065
  2. PREVACID [Suspect]
     Active Substance: LANSOPRAZOLE
     Indication: Product used for unknown indication
     Route: 065

REACTIONS (5)
  - Fatigue [Unknown]
  - Weight increased [Unknown]
  - Hunger [Unknown]
  - Dyspepsia [Unknown]
  - Product dose omission issue [Unknown]
